FAERS Safety Report 10371336 (Version 1)
Quarter: 2014Q3

REPORT INFORMATION
  Report Type: Spontaneous
  Country: US (occurrence: None)
  Receive Date: 20140806
  Receipt Date: 20140806
  Transmission Date: 20150326
  Serious: Yes (Hospitalization)
  Sender: FDA-Public Use
  Company Number: IPC201407-000393

PATIENT
  Age: 67 Year
  Sex: Male

DRUGS (11)
  1. WARFARIN (WARFARIN) (WARFARIN) [Concomitant]
     Active Substance: WARFARIN
  2. PANTOPRAZOLE [Concomitant]
     Active Substance: PANTOPRAZOLE SODIUM
  3. PERINDOPRIL [Suspect]
     Active Substance: PERINDOPRIL
  4. ISOPHANE INSULIN (ISOPHANE INSULIN) (ISOPHANE INSULIN) [Concomitant]
  5. FELODOPINE (FELODOPINE) (FELODOPINE) [Concomitant]
  6. ATORVASTATIN (ATORVASTATIN) (ATORVASTATIN) [Concomitant]
     Active Substance: ATORVASTATIN
  7. FLUOXETINE [Concomitant]
     Active Substance: FLUOXETINE\FLUOXETINE HYDROCHLORIDE
  8. SODIUM PICOSULFATE [Suspect]
     Active Substance: SODIUM PICOSULFATE
  9. INDAPAMIDE. [Suspect]
     Active Substance: INDAPAMIDE
  10. METFORMIN HYDROCHLORIDE (METFORMIN HYDROCHLORIDE) (METFORMIN HYDROCHLORIDE) [Suspect]
     Active Substance: METFORMIN HYDROCHLORIDE
  11. GLICLAZIDE (GLICLAZIDE) (GLICLAZIDE) [Concomitant]

REACTIONS (9)
  - Lactic acidosis [None]
  - Respiratory rate increased [None]
  - Heart rate increased [None]
  - Dehydration [None]
  - Chest pain [None]
  - Renal failure acute [None]
  - Nausea [None]
  - Vomiting [None]
  - Blood potassium increased [None]
